FAERS Safety Report 7953021-6 (Version None)
Quarter: 2011Q4

REPORT INFORMATION
  Report Type: 
  Country: None (occurrence: None)
  Receive Date: 20111201
  Receipt Date: 20111129
  Transmission Date: 20120403
  Serious: Yes (Other)
  Sender: FDA-Public Use
  Company Number: US-PFIZER INC-2011291584

PATIENT
  Sex: Male
  Weight: 79.365 kg

DRUGS (1)
  1. LYRICA [Suspect]
     Indication: NECK PAIN
     Dosage: 75 MG, 1X/DAY
     Route: 048
     Dates: start: 20111001

REACTIONS (2)
  - DYSURIA [None]
  - PROSTATIC DISORDER [None]
